FAERS Safety Report 17204745 (Version 2)
Quarter: 2020Q2

REPORT INFORMATION
  Report Type: Report from Study
  Country: JP (occurrence: JP)
  Receive Date: 20191226
  Receipt Date: 20200421
  Transmission Date: 20200713
  Serious: Yes (Death, Other)
  Sender: FDA-Public Use
  Company Number: JP-AMGEN-JPNCT2019214409

PATIENT
  Age: 70 Year
  Sex: Male

DRUGS (19)
  1. NESP [Suspect]
     Active Substance: DARBEPOETIN ALFA
     Dosage: 240 MICROGRAM
     Route: 058
     Dates: start: 20181227, end: 20181227
  2. CRESTOR [Concomitant]
     Active Substance: ROSUVASTATIN CALCIUM
     Indication: DYSLIPIDAEMIA
     Dosage: UNK
     Route: 048
     Dates: end: 20190606
  3. SUGLAT [Concomitant]
     Active Substance: IPRAGLIFLOZIN L-PROLINE
     Indication: DIABETES MELLITUS
     Dosage: UNK
     Route: 048
     Dates: start: 20181115, end: 20190606
  4. BAKTAR [Concomitant]
     Active Substance: SULFAMETHOXAZOLE\TRIMETHOPRIM
     Indication: PRODUCT USED FOR UNKNOWN INDICATION
     Dosage: UNK
     Route: 048
     Dates: end: 20190606
  5. CONIEL [Concomitant]
     Active Substance: BENIDIPINE HYDROCHLORIDE
     Indication: MYOCARDIAL ISCHAEMIA
     Dosage: UNK
     Route: 048
     Dates: end: 20190606
  6. EPADEL [Concomitant]
     Active Substance: ICOSAPENT
     Indication: DYSLIPIDAEMIA
     Dosage: UNK
     Route: 048
     Dates: end: 20190606
  7. NESP [Suspect]
     Active Substance: DARBEPOETIN ALFA
     Dosage: 240 MICROGRAM
     Route: 058
     Dates: start: 20190123, end: 20190123
  8. NESP [Suspect]
     Active Substance: DARBEPOETIN ALFA
     Dosage: 240 MICROGRAM
     Route: 058
     Dates: start: 20181203, end: 20181217
  9. OMEPRAL [Concomitant]
     Active Substance: OMEPRAZOLE
     Indication: MYOCARDIAL ISCHAEMIA
     Dosage: UNK
     Route: 048
     Dates: end: 20190606
  10. INSULIN GLARGINE [Concomitant]
     Active Substance: INSULIN GLARGINE
     Indication: DIABETES MELLITUS
     Dosage: UNK
     Route: 065
     Dates: end: 20190606
  11. BASEN [Concomitant]
     Indication: DIABETES MELLITUS
     Dosage: UNK
     Route: 048
     Dates: end: 20190606
  12. BAYASPIRIN [Concomitant]
     Active Substance: ASPIRIN
     Indication: MYOCARDIAL ISCHAEMIA
     Dosage: UNK
     Route: 048
     Dates: end: 20190606
  13. JANUVIA [Concomitant]
     Active Substance: SITAGLIPTIN PHOSPHATE
     Indication: DIABETES MELLITUS
     Dosage: UNK
     Route: 048
     Dates: end: 20190606
  14. NESP [Suspect]
     Active Substance: DARBEPOETIN ALFA
     Indication: MYELODYSPLASTIC SYNDROME
     Dosage: 240 MICROGRAM, Q2WK
     Route: 058
     Dates: start: 20181010, end: 20181119
  15. NESP [Suspect]
     Active Substance: DARBEPOETIN ALFA
     Dosage: 240 MICROGRAM
     Route: 058
     Dates: start: 20190107, end: 20190107
  16. MAINTATE [Concomitant]
     Active Substance: BISOPROLOL FUMARATE
     Indication: MYOCARDIAL ISCHAEMIA
     Dosage: UNK
     Route: 048
     Dates: end: 20190606
  17. METGLUCO [Concomitant]
     Active Substance: METFORMIN HYDROCHLORIDE
     Indication: DIABETES MELLITUS
     Dosage: UNK
     Route: 048
     Dates: end: 20190606
  18. BONALON [Concomitant]
     Active Substance: ALENDRONATE SODIUM
     Indication: PRODUCT USED FOR UNKNOWN INDICATION
     Dosage: UNK
     Route: 048
     Dates: end: 20190606
  19. TANATRIL [Concomitant]
     Active Substance: IMIDAPRIL
     Indication: MYOCARDIAL ISCHAEMIA
     Dosage: UNK
     Route: 048
     Dates: end: 20190606

REACTIONS (1)
  - Organising pneumonia [Fatal]

NARRATIVE: CASE EVENT DATE: 20190130
